FAERS Safety Report 13942429 (Version 3)
Quarter: 2017Q4

REPORT INFORMATION
  Report Type: Report from Study
  Country: US (occurrence: US)
  Receive Date: 20170906
  Receipt Date: 20171110
  Transmission Date: 20180320
  Serious: Yes (Death, Life-Threatening, Hospitalization, Other)
  Sender: FDA-Public Use
  Company Number: US-TAKEDA-2017MPI007575

PATIENT
  Age: 20 Year
  Sex: Male
  Weight: 70.7 kg

DRUGS (8)
  1. VINCRISTINE [Suspect]
     Active Substance: VINCRISTINE
     Indication: PRECURSOR T-LYMPHOBLASTIC LYMPHOMA/LEUKAEMIA
     Dosage: 1.5 MG/M2, UNK
     Route: 042
     Dates: start: 20170731, end: 20170821
  2. MARIJUANA [Suspect]
     Active Substance: CANNABIS SATIVA SUBSP. INDICA TOP
     Indication: PRODUCT USED FOR UNKNOWN INDICATION
     Dosage: UNK
     Route: 065
  3. VELCADE [Suspect]
     Active Substance: BORTEZOMIB
     Indication: PRECURSOR T-LYMPHOBLASTIC LYMPHOMA/LEUKAEMIA
     Dosage: 1.3 MG/M2, UNK
     Route: 042
     Dates: start: 20170731, end: 20170810
  4. DEXAMETHASONE. [Suspect]
     Active Substance: DEXAMETHASONE
     Indication: PRECURSOR T-LYMPHOBLASTIC LYMPHOMA/LEUKAEMIA
     Dosage: 3 MG/M2, UNK
     Route: 048
     Dates: start: 20170731, end: 20170827
  5. DAUNORUBICIN [Suspect]
     Active Substance: DAUNORUBICIN
     Indication: PRECURSOR T-LYMPHOBLASTIC LYMPHOMA/LEUKAEMIA
     Dosage: 25 MG/M2, UNK
     Route: 042
     Dates: start: 20170731, end: 20170821
  6. PEGASPARGASE [Suspect]
     Active Substance: PEGASPARGASE
     Indication: PRECURSOR T-LYMPHOBLASTIC LYMPHOMA/LEUKAEMIA
     Dosage: UNK
     Route: 042
     Dates: end: 20170819
  7. CYTARABINE. [Suspect]
     Active Substance: CYTARABINE
     Indication: PRECURSOR T-LYMPHOBLASTIC LYMPHOMA/LEUKAEMIA
     Dosage: UNK
     Route: 037
     Dates: start: 20170731, end: 20170731
  8. METHOTREXATE. [Suspect]
     Active Substance: METHOTREXATE
     Indication: PRECURSOR T-LYMPHOBLASTIC LYMPHOMA/LEUKAEMIA
     Dosage: UNK
     Route: 037
     Dates: end: 20170828

REACTIONS (29)
  - Hypoglycaemia [Unknown]
  - Hypernatraemia [Unknown]
  - Electrocardiogram QT prolonged [Unknown]
  - Blood bilirubin increased [Unknown]
  - Pancreatitis [Not Recovered/Not Resolved]
  - Amylase increased [Unknown]
  - Confusional state [Not Recovered/Not Resolved]
  - Hyperkalaemia [Unknown]
  - Sepsis [Not Recovered/Not Resolved]
  - Hypotension [Unknown]
  - International normalised ratio increased [Unknown]
  - Hypoalbuminaemia [Unknown]
  - Hypercalcaemia [Unknown]
  - Hyperglycaemia [Unknown]
  - Blood creatinine increased [Unknown]
  - Multiple organ dysfunction syndrome [Fatal]
  - Acute kidney injury [Unknown]
  - Alanine aminotransferase increased [Unknown]
  - Platelet count decreased [Unknown]
  - Seizure [Unknown]
  - Acidosis [Unknown]
  - Activated partial thromboplastin time prolonged [Unknown]
  - Candida infection [Unknown]
  - Cardiac arrest [Unknown]
  - Somnolence [Unknown]
  - Lipase increased [Unknown]
  - Hypothermia [Unknown]
  - Aspartate aminotransferase increased [Unknown]
  - Hepatic failure [Unknown]

NARRATIVE: CASE EVENT DATE: 20170829
